FAERS Safety Report 21335095 (Version 1)
Quarter: 2022Q3

REPORT INFORMATION
  Report Type: Spontaneous
  Country: JP (occurrence: JP)
  Receive Date: 20220914
  Receipt Date: 20220914
  Transmission Date: 20221026
  Serious: Yes (Other)
  Sender: FDA-Public Use
  Company Number: JP-BEH-2022149726

PATIENT
  Sex: Male

DRUGS (1)
  1. ALBUMINAR-25 [Suspect]
     Active Substance: ALBUMIN HUMAN
     Route: 065

REACTIONS (2)
  - Hepatitis C virus test positive [Unknown]
  - Suspected transmission of an infectious agent via product [Unknown]
